FAERS Safety Report 20116154 (Version 1)
Quarter: 2021Q4

REPORT INFORMATION
  Report Type: Spontaneous
  Country: US (occurrence: US)
  Receive Date: 20211126
  Receipt Date: 20211126
  Transmission Date: 20220303
  Serious: Yes (Other)
  Sender: FDA-Public Use
  Company Number: US-SA-SAC20211124000620

PATIENT
  Sex: Male

DRUGS (1)
  1. DUPIXENT [Suspect]
     Active Substance: DUPILUMAB
     Dosage: 300 MG, QOW
     Route: 058

REACTIONS (6)
  - Macular degeneration [Unknown]
  - Dry skin [Unknown]
  - Condition aggravated [Unknown]
  - Nasopharyngitis [Unknown]
  - Bronchitis [Unknown]
  - Pruritus [Unknown]
